FAERS Safety Report 7031527-4 (Version None)
Quarter: 2010Q4

REPORT INFORMATION
  Report Type: 
  Country: None (occurrence: None)
  Receive Date: 20101006
  Receipt Date: 20100928
  Transmission Date: 20110411
  Serious: Yes (Hospitalization)
  Sender: FDA-Public Use
  Company Number: US-MERCK-1010USA00021

PATIENT
  Age: 48 Year
  Sex: Female

DRUGS (6)
  1. ISENTRESS [Suspect]
     Indication: HIV INFECTION
     Route: 048
     Dates: start: 20100401, end: 20100401
  2. ISENTRESS [Suspect]
     Route: 048
     Dates: start: 20100501, end: 20100601
  3. TRUVADA [Concomitant]
     Route: 065
  4. WELLBUTRIN [Concomitant]
     Route: 065
  5. NORVIR [Concomitant]
     Route: 065
  6. REYATAZ [Concomitant]
     Route: 065

REACTIONS (1)
  - CEREBELLAR ATAXIA [None]
